FAERS Safety Report 7912981-X (Version None)
Quarter: 2011Q4

REPORT INFORMATION
  Report Type: 
  Country: None (occurrence: None)
  Receive Date: 20111114
  Receipt Date: 20111104
  Transmission Date: 20120403
  Serious: Yes (Other)
  Sender: FDA-Public Use
  Company Number: US-BAYER-201019930NA

PATIENT
  Age: 31 Year
  Sex: Female
  Weight: 77.098 kg

DRUGS (7)
  1. ZANTAC [Concomitant]
  2. METFORMIN HCL [Concomitant]
     Indication: POLYCYSTIC OVARIES
     Dosage: UNK UNK, QD
  3. GLUCOPHAGE [Concomitant]
     Indication: DIABETES MELLITUS
     Dosage: UNK
     Dates: start: 20050101, end: 20090101
  4. DIABETA [Concomitant]
  5. VITAMIN TAB [Concomitant]
  6. YASMIN [Suspect]
     Indication: ORAL CONTRACEPTION
     Dosage: UNK UNK, QD
     Route: 048
     Dates: start: 20080101, end: 20080901
  7. REGLAN [Concomitant]

REACTIONS (13)
  - BACK PAIN [None]
  - DIARRHOEA [None]
  - NAUSEA [None]
  - DYSPEPSIA [None]
  - CHOLECYSTITIS CHRONIC [None]
  - ASTHENIA [None]
  - VOMITING [None]
  - ILEUS [None]
  - ABDOMINAL PAIN [None]
  - GALLBLADDER INJURY [None]
  - CHOLELITHIASIS [None]
  - ABDOMINAL PAIN UPPER [None]
  - ABDOMINAL DISTENSION [None]
